FAERS Safety Report 5909681-4 (Version None)
Quarter: 2008Q4

REPORT INFORMATION
  Report Type: 
  Country: None (occurrence: None)
  Receive Date: 20081007
  Receipt Date: 20080926
  Transmission Date: 20090506
  Serious: Yes (Hospitalization)
  Sender: FDA-Public Use
  Company Number: PHHY2008FR22891

PATIENT
  Sex: Female
  Weight: 61 kg

DRUGS (5)
  1. CGP 57148B T35717+ [Suspect]
     Dosage: 400  MG/DAY
     Dates: start: 20080130
  2. LIPANTHYL [Concomitant]
     Dosage: 160 MG/DAY
     Dates: start: 20080204
  3. PRIMPERAN TAB [Concomitant]
     Indication: NAUSEA
     Dosage: UNK
     Dates: start: 20080204
  4. STILNOX [Concomitant]
     Dosage: 10 MG/DAY
     Dates: start: 20080204
  5. CELECTOL [Concomitant]
     Dosage: 200 MG/DAILY
     Dates: start: 20080204

REACTIONS (3)
  - PALMAR-PLANTAR ERYTHRODYSAESTHESIA SYNDROME [None]
  - PRURIGO [None]
  - RECTAL HAEMORRHAGE [None]
